FAERS Safety Report 6839589-1 (Version None)
Quarter: 2010Q3

REPORT INFORMATION
  Report Type: 
  Country: None (occurrence: None)
  Receive Date: 20100714
  Receipt Date: 20100505
  Transmission Date: 20110219
  Serious: No
  Sender: FDA-Public Use
  Company Number: A0858409A

PATIENT
  Age: 59 Year
  Sex: Female

DRUGS (5)
  1. FLOVENT [Suspect]
     Indication: ASTHMA
     Dosage: 2PUFF TWICE PER DAY
     Route: 055
     Dates: start: 20100503
  2. FLONASE [Concomitant]
  3. COZAAR [Concomitant]
  4. GABAPENTIN [Concomitant]
  5. ALLOPURINOL [Concomitant]

REACTIONS (1)
  - APHONIA [None]
